FAERS Safety Report 9007423 (Version 1)
Quarter: 2013Q1

REPORT INFORMATION
  Report Type: Spontaneous
  Country: US (occurrence: US)
  Receive Date: 20130110
  Receipt Date: 20130110
  Transmission Date: 20140127
  Serious: Yes (Other)
  Sender: FDA-Public Use
  Company Number: US-009507513-1301USA003062

PATIENT
  Sex: Female

DRUGS (6)
  1. MONTELUKAST SODIUM [Suspect]
     Route: 048
  2. LEVOTHYROXINE SODIUM [Suspect]
  3. TIOTROPIUM BROMIDE [Suspect]
  4. VENTOLIN (ALBUTEROL) [Suspect]
  5. OMEPRAZOLE [Suspect]
     Route: 048
  6. MEBEVERINE HYDROCHLORIDE [Suspect]

REACTIONS (5)
  - Malaise [Unknown]
  - Middle insomnia [Unknown]
  - Dyspnoea [Unknown]
  - Cough [Unknown]
  - Asthma [Unknown]
